FAERS Safety Report 16521355 (Version 5)
Quarter: 2019Q3

REPORT INFORMATION
  Report Type: Report from Study
  Country: CA (occurrence: CA)
  Receive Date: 20190703
  Receipt Date: 20190927
  Transmission Date: 20191004
  Serious: Yes (Other)
  Sender: FDA-Public Use
  Company Number: CA-GLAXOSMITHKLINE-CA2019AMR116410

PATIENT
  Age: 77 Year
  Sex: Female

DRUGS (2)
  1. MEPOLIZUMAB [Suspect]
     Active Substance: MEPOLIZUMAB
     Indication: ASTHMA
     Dosage: 100 MG, Z (MONTHLY)
     Route: 042
     Dates: start: 20190509
  2. MEPOLIZUMAB [Suspect]
     Active Substance: MEPOLIZUMAB
     Dosage: 100 MG, Z (MONTHLY)
     Route: 042

REACTIONS (8)
  - Cough [Recovering/Resolving]
  - Productive cough [Recovering/Resolving]
  - Bronchitis [Not Recovered/Not Resolved]
  - Palpitations [Not Recovered/Not Resolved]
  - Lung infection [Recovering/Resolving]
  - Nocturnal dyspnoea [Recovered/Resolved]
  - Dyspnoea [Not Recovered/Not Resolved]
  - Sputum discoloured [Recovering/Resolving]

NARRATIVE: CASE EVENT DATE: 20190828
